FAERS Safety Report 7042969 (Version 6)
Quarter: 2014Q2

REPORT INFORMATION
  Report Type: Spontaneous
  Country: US (occurrence: US)
  Receive Date: 20090707
  Receipt Date: 20140407
  Transmission Date: 20141212
  Serious: Yes (Hospitalization)
  Sender: FDA-Public Use
  Company Number: US-ALEXION-A200900532

PATIENT
  Sex: Female

DRUGS (2)
  1. SOLIRIS [Suspect]
     Indication: PAROXYSMAL NOCTURNAL HAEMOGLOBINURIA
     Dosage: 600 MG, QW
     Route: 042
     Dates: start: 2009, end: 200903
  2. SOLIRIS [Suspect]
     Dosage: 900 MG, Q2W
     Route: 042
     Dates: start: 200903

REACTIONS (5)
  - Anaemia [Not Recovered/Not Resolved]
  - Abdominal pain [Recovering/Resolving]
  - Gastrointestinal mucosal necrosis [Not Recovered/Not Resolved]
  - Liver function test abnormal [Unknown]
  - Platelet count decreased [Unknown]
